FAERS Safety Report 9594037 (Version 1)
Quarter: 2013Q4

REPORT INFORMATION
  Report Type: Spontaneous
  Country: US (occurrence: US)
  Receive Date: 20131004
  Receipt Date: 20131004
  Transmission Date: 20140711
  Serious: Yes (Hospitalization, Other)
  Sender: FDA-Public Use
  Company Number: US-ASTRAZENECA-2013SE71987

PATIENT
  Age: 66 Year
  Sex: Male

DRUGS (19)
  1. NEXIUM [Suspect]
     Route: 048
  2. CRESTOR [Interacting]
     Route: 048
  3. METFORMIN HYDROCHLORIDE [Interacting]
  4. ORLISTAT (ALLI) [Interacting]
     Indication: WEIGHT LOSS DIET
     Route: 048
  5. ORLISTAT (ALLI) [Interacting]
     Indication: WEIGHT LOSS DIET
     Route: 048
     Dates: start: 20130912
  6. LASIX [Interacting]
     Indication: CARDIAC FAILURE CONGESTIVE
     Route: 048
  7. LASIX [Interacting]
     Indication: CARDIAC FAILURE CONGESTIVE
  8. NIASPAN [Interacting]
  9. PLAVIX [Interacting]
  10. GLIPIZIDE [Interacting]
  11. DILTIAZEM HYDROCHLORIDE [Interacting]
  12. ENALAPRIL [Interacting]
  13. COUMADIN [Interacting]
  14. DIGOXIN [Interacting]
  15. POTASSIUM (BAYOR) [Interacting]
  16. ACTOS [Interacting]
  17. VICTOZA [Interacting]
  18. ALLERGY SHOTS [Interacting]
     Indication: MULTIPLE ALLERGIES
     Dosage: EVERY THREE DAYS
  19. AVANDIA [Interacting]

REACTIONS (8)
  - Drug interaction [Unknown]
  - Myocardial infarction [Unknown]
  - Fluid retention [Not Recovered/Not Resolved]
  - Weight increased [Not Recovered/Not Resolved]
  - Urine output decreased [Not Recovered/Not Resolved]
  - Pulmonary oedema [Unknown]
  - Cardiac failure congestive [Unknown]
  - Multiple allergies [Unknown]
